FAERS Safety Report 17929329 (Version 1)
Quarter: 2020Q2

REPORT INFORMATION
  Report Type: Spontaneous
  Country: US (occurrence: US)
  Receive Date: 20200622
  Receipt Date: 20200622
  Transmission Date: 20200714
  Serious: Yes (Hospitalization)
  Sender: FDA-Public Use
  Company Number: None

PATIENT
  Age: 44 Year

DRUGS (5)
  1. NABUMETONE. [Concomitant]
     Active Substance: NABUMETONE
  2. ONDANSETRON [Concomitant]
     Active Substance: ONDANSETRON
  3. OMEPRAZOLE. [Concomitant]
     Active Substance: OMEPRAZOLE
  4. HUMIRA [Suspect]
     Active Substance: ADALIMUMAB
     Indication: PSORIATIC ARTHROPATHY
     Dosage: ?          OTHER DOSE:40MG/0.4ML;?
     Route: 058
     Dates: start: 20200118
  5. QUDEXY XR [Concomitant]
     Active Substance: TOPIRAMATE

REACTIONS (1)
  - Therapy interrupted [None]

NARRATIVE: CASE EVENT DATE: 20200430
